FAERS Safety Report 7069186-7 (Version None)
Quarter: 2010Q4

REPORT INFORMATION
  Report Type: 
  Country: None (occurrence: None)
  Receive Date: 20101028
  Receipt Date: 20101018
  Transmission Date: 20110411
  Serious: Yes (Death)
  Sender: FDA-Public Use
  Company Number: B0674546A

PATIENT
  Age: 66 Year
  Sex: Male

DRUGS (9)
  1. ACYCLOVIR [Suspect]
     Route: 048
     Dates: start: 20100905, end: 20100909
  2. AZATHIOPRINE [Concomitant]
  3. PREDNISOLONE [Concomitant]
     Dosage: 4.8G PER DAY
  4. MESALAZINE [Concomitant]
  5. AMLODIPINE [Concomitant]
  6. OMEPRAZOLE [Concomitant]
  7. SIMVASTATIN [Concomitant]
  8. CALCICHEW D3 [Concomitant]
  9. ALENDRONIC ACID [Concomitant]

REACTIONS (6)
  - ABDOMINAL PAIN [None]
  - BLOOD CREATININE INCREASED [None]
  - DIARRHOEA [None]
  - INTESTINAL PERFORATION [None]
  - RENAL FAILURE ACUTE [None]
  - VOMITING [None]
